FAERS Safety Report 18308380 (Version 2)
Quarter: 2020Q4

REPORT INFORMATION
  Report Type: Spontaneous
  Country: DE (occurrence: DE)
  Receive Date: 20200924
  Receipt Date: 20201230
  Transmission Date: 20210113
  Serious: Yes (Hospitalization, Other)
  Sender: FDA-Public Use
  Company Number: DE-ASCEND THERAPEUTICS US, LLC-2091116

PATIENT
  Age: 1 Week
  Sex: Male

DRUGS (11)
  1. ESTRADIOL. [Suspect]
     Active Substance: ESTRADIOL
     Route: 064
  2. ABILIFY [Suspect]
     Active Substance: ARIPIPRAZOLE
     Route: 064
  3. HUMALOG [Suspect]
     Active Substance: INSULIN LISPRO
     Route: 064
  4. ESTROGEL [Suspect]
     Active Substance: ESTRADIOL
  5. BUSPAR [Suspect]
     Active Substance: BUSPIRONE HYDROCHLORIDE
     Route: 065
  6. PROZAC [Suspect]
     Active Substance: FLUOXETINE HYDROCHLORIDE
     Route: 064
  7. REMERON [Suspect]
     Active Substance: MIRTAZAPINE
     Route: 064
  8. LEVOTHYROXINE. [Suspect]
     Active Substance: LEVOTHYROXINE
     Route: 064
  9. HUMALIN (INSULIN) UNKNOWN [Suspect]
     Active Substance: INSULIN NOS
     Route: 064
  10. ESTROGEL [Suspect]
     Active Substance: ESTRADIOL
     Indication: PRODUCT USED FOR UNKNOWN INDICATION
     Route: 064
  11. PROGESTERONE. [Suspect]
     Active Substance: PROGESTERONE
     Route: 064

REACTIONS (5)
  - Neonatal respiratory distress syndrome [Recovered/Resolved]
  - Foetal exposure during pregnancy [Unknown]
  - Heart rate decreased [Recovered/Resolved]
  - Dyspnoea [Recovered/Resolved]
  - Premature baby [Recovered/Resolved]

NARRATIVE: CASE EVENT DATE: 20170828
